FAERS Safety Report 9716704 (Version 2)
Quarter: 2013Q4

REPORT INFORMATION
  Report Type: Report from Study
  Country: GB (occurrence: GB)
  Receive Date: 20131127
  Receipt Date: 20131127
  Transmission Date: 20140711
  Serious: Yes (Other)
  Sender: FDA-Public Use
  Company Number: GB-EISAI INC-E7389-04408-SOL-GB

PATIENT
  Age: 67 Year
  Sex: Female
  Weight: 68 kg

DRUGS (14)
  1. HALAVEN [Suspect]
     Indication: BREAST CANCER METASTATIC
     Route: 041
     Dates: start: 20131028, end: 20131028
  2. TINZAPARIN [Concomitant]
     Indication: PULMONARY EMBOLISM
     Dosage: 12000U
     Route: 058
     Dates: start: 20130219, end: 20131110
  3. TINZAPARIN [Concomitant]
     Dosage: 4000U
     Route: 058
     Dates: start: 20131111, end: 20131117
  4. TINZAPARIN [Concomitant]
     Dosage: 12000U
     Route: 058
     Dates: start: 20131118
  5. PARACETAMOL [Concomitant]
     Indication: BONE PAIN
     Route: 048
     Dates: start: 20130909
  6. OMEPRAZOLE [Concomitant]
     Indication: PROPHYLAXIS
     Route: 048
     Dates: start: 20131028
  7. ONDANSETRON [Concomitant]
     Indication: PROPHYLAXIS OF NAUSEA AND VOMITING
     Route: 048
     Dates: start: 20131028, end: 20131030
  8. ONDANSETRON [Concomitant]
     Route: 042
     Dates: start: 20131028, end: 20131028
  9. DOMPERIDONE [Concomitant]
     Indication: PROPHYLAXIS OF NAUSEA AND VOMITING
     Route: 048
     Dates: start: 20131028, end: 20131101
  10. DEXAMETHASONE SODIUM PHOSPHATE [Concomitant]
     Indication: PROPHYLAXIS OF NAUSEA AND VOMITING
     Route: 042
     Dates: start: 20131028, end: 20131028
  11. DEXAMETHASONE SODIUM PHOSPHATE [Concomitant]
     Indication: ALLERGY PROPHYLAXIS
  12. DEXAMETHASONE [Concomitant]
     Indication: PROPHYLAXIS OF NAUSEA AND VOMITING
     Route: 048
     Dates: start: 20131028
  13. DEXAMETHASONE [Concomitant]
     Indication: ALLERGY PROPHYLAXIS
  14. IBANDRONATE [Concomitant]
     Indication: METASTASES TO BONE
     Route: 048
     Dates: start: 20130205

REACTIONS (13)
  - Pulmonary embolism [Not Recovered/Not Resolved]
  - Alanine aminotransferase increased [Recovering/Resolving]
  - Blood bilirubin increased [Not Recovered/Not Resolved]
  - Bone pain [Not Recovered/Not Resolved]
  - Decreased appetite [Not Recovered/Not Resolved]
  - Anaemia [Not Recovered/Not Resolved]
  - Dyspnoea [Not Recovered/Not Resolved]
  - Oedema peripheral [Not Recovered/Not Resolved]
  - Alopecia [Not Recovered/Not Resolved]
  - Hypophosphataemia [Not Recovered/Not Resolved]
  - Headache [Not Recovered/Not Resolved]
  - Abdominal pain [Not Recovered/Not Resolved]
  - Arthralgia [Not Recovered/Not Resolved]
